FAERS Safety Report 5946285-1 (Version None)
Quarter: 2008Q4

REPORT INFORMATION
  Report Type: 
  Country: None (occurrence: None)
  Receive Date: 20081106
  Receipt Date: 20081029
  Transmission Date: 20090506
  Serious: Yes (Other)
  Sender: FDA-Public Use
  Company Number: 2008AL011485

PATIENT
  Age: 9 Month

DRUGS (2)
  1. FLUOXETINE [Suspect]
     Indication: DRUG ADMINISTRATION ERROR
  2. SULFONAMIDES [Concomitant]

REACTIONS (2)
  - DRUG DISPENSING ERROR [None]
  - TOXIC EPIDERMAL NECROLYSIS [None]
